FAERS Safety Report 26058689 (Version 1)
Quarter: 2025Q4

REPORT INFORMATION
  Report Type: Report from Study
  Country: US (occurrence: US)
  Receive Date: 20251118
  Receipt Date: 20251118
  Transmission Date: 20260117
  Serious: Yes (Other)
  Sender: ALEXION PHARMACEUTICALS
  Company Number: A202108179

PATIENT
  Age: 27 Year
  Sex: Male

DRUGS (1)
  1. STRENSIQ [Suspect]
     Active Substance: ASFOTASE ALFA
     Indication: Phosphorus metabolism disorder
     Dosage: 2 MILLIGRAM/KILOGRAM, TIW
     Route: 065

REACTIONS (7)
  - Drug-induced liver injury [Unknown]
  - Hepatic steatosis [Unknown]
  - Hyperhidrosis [Unknown]
  - Body fat disorder [Unknown]
  - Skin striae [Unknown]
  - Vision blurred [Unknown]
  - Keratoconus [Recovered/Resolved]

NARRATIVE: CASE EVENT DATE: 20250109
